FAERS Safety Report 12912523 (Version 3)
Quarter: 2016Q4

REPORT INFORMATION
  Report Type: Spontaneous
  Country: GB (occurrence: GB)
  Receive Date: 20161104
  Receipt Date: 20161226
  Transmission Date: 20170207
  Serious: Yes (Hospitalization, Other)
  Sender: FDA-Public Use
  Company Number: PHHY2016GB150887

PATIENT
  Sex: Female

DRUGS (1)
  1. ILARIS [Suspect]
     Active Substance: CANAKINUMAB
     Indication: HYPER IGD SYNDROME
     Dosage: 4 MG/KG, QMO (80MG)
     Route: 058
     Dates: start: 20160629

REACTIONS (5)
  - Haemophilus infection [Recovered/Resolved]
  - Condition aggravated [Recovered/Resolved]
  - Lower respiratory tract infection [Recovered/Resolved]
  - Enterovirus infection [Recovered/Resolved]
  - Hyper IgD syndrome [Recovered/Resolved]

NARRATIVE: CASE EVENT DATE: 20161025
